FAERS Safety Report 9046591 (Version 2)
Quarter: 2013Q1

REPORT INFORMATION
  Report Type: Spontaneous
  Country: US (occurrence: US)
  Receive Date: 20130204
  Receipt Date: 20130311
  Transmission Date: 20140127
  Serious: Yes (Hospitalization, Other)
  Sender: FDA-Public Use
  Company Number: US-BIOGENIDEC-2013BI009600

PATIENT
  Age: 59 None
  Sex: Female

DRUGS (2)
  1. TYSABRI [Suspect]
     Indication: MULTIPLE SCLEROSIS
     Route: 042
     Dates: start: 20100331
  2. COUMADIN [Concomitant]
     Indication: THROMBOSIS

REACTIONS (5)
  - Ankle fracture [Not Recovered/Not Resolved]
  - Coagulopathy [Not Recovered/Not Resolved]
  - Head injury [Not Recovered/Not Resolved]
  - Thrombosis [Not Recovered/Not Resolved]
  - Fall [Recovered/Resolved]
